FAERS Safety Report 8803166 (Version 2)
Quarter: 2015Q1

REPORT INFORMATION
  Report Type: Report from Study
  Country: US (occurrence: US)
  Receive Date: 20120924
  Receipt Date: 20150225
  Transmission Date: 20150721
  Serious: Yes (Death)
  Sender: FDA-Public Use
  Company Number: US-ROCHE-1092336

PATIENT
  Sex: Male
  Weight: 90 kg

DRUGS (40)
  1. TOPOTECAN [Concomitant]
     Active Substance: TOPOTECAN\TOPOTECAN HYDROCHLORIDE
  2. VINCRISTINE [Concomitant]
     Active Substance: VINCRISTINE
  3. ZINECARD [Concomitant]
     Active Substance: DEXRAZOXANE HYDROCHLORIDE
  4. DOCETAXEL. [Concomitant]
     Active Substance: DOCETAXEL
     Route: 042
  5. ATIVAN [Concomitant]
     Active Substance: LORAZEPAM
  6. BENADRYL [Concomitant]
     Active Substance: DIPHENHYDRAMINE HYDROCHLORIDE
  7. FLUDARA [Concomitant]
     Active Substance: FLUDARABINE PHOSPHATE
  8. AREDIA [Concomitant]
     Active Substance: PAMIDRONATE DISODIUM
  9. AVASTIN [Suspect]
     Active Substance: BEVACIZUMAB
     Indication: BRAIN NEOPLASM MALIGNANT
     Route: 042
  10. HERCEPTIN [Concomitant]
     Active Substance: TRASTUZUMAB
     Route: 042
  11. TAGAMET [Concomitant]
     Active Substance: CIMETIDINE
     Route: 042
  12. DTC [Concomitant]
  13. GEMZAR [Concomitant]
     Active Substance: GEMCITABINE HYDROCHLORIDE
  14. CARBOPLATIN. [Concomitant]
     Active Substance: CARBOPLATIN
     Route: 042
  15. DECADRON [Concomitant]
     Active Substance: DEXAMETHASONE
  16. ZOFRAN [Concomitant]
     Active Substance: ONDANSETRON HYDROCHLORIDE
  17. CISPLATIN. [Concomitant]
     Active Substance: CISPLATIN
  18. RITUXAN [Concomitant]
     Active Substance: RITUXIMAB
     Route: 065
  19. NAVELBINE [Concomitant]
     Active Substance: VINORELBINE TARTRATE
  20. ANZEMET [Concomitant]
     Active Substance: DOLASETRON MESYLATE
  21. 5-FU [Concomitant]
     Active Substance: FLUOROURACIL
     Route: 042
  22. LEUCOVORIN [Concomitant]
     Active Substance: LEUCOVORIN
     Route: 042
  23. MESNA. [Concomitant]
     Active Substance: MESNA
  24. TAXOL [Concomitant]
     Active Substance: PACLITAXEL
  25. BLEOMYCIN [Concomitant]
     Active Substance: BLEOMYCIN SULFATE
  26. ARA-C [Concomitant]
     Active Substance: CYTARABINE
  27. MITOMYCIN. [Concomitant]
     Active Substance: MITOMYCIN
  28. METHOTRATE [Concomitant]
  29. ETHYOL [Concomitant]
     Active Substance: AMIFOSTINE
  30. VELBAN [Concomitant]
     Active Substance: VINBLASTINE SULFATE
  31. ZOMETA [Concomitant]
     Active Substance: ZOLEDRONIC ACID
  32. CAMPTOSAR [Concomitant]
     Active Substance: IRINOTECAN HYDROCHLORIDE
  33. CYTOXAN [Concomitant]
     Active Substance: CYCLOPHOSPHAMIDE
  34. OXALIPLATIN. [Concomitant]
     Active Substance: OXALIPLATIN
  35. WINRHO [Concomitant]
     Active Substance: HUMAN RHO(D) IMMUNE GLOBULIN
     Route: 042
  36. AVASTIN [Suspect]
     Active Substance: BEVACIZUMAB
     Route: 042
  37. KYTRIL [Concomitant]
     Active Substance: GRANISETRON HYDROCHLORIDE
     Route: 042
  38. ADRIAMYCIN [Concomitant]
     Active Substance: DOXORUBICIN HYDROCHLORIDE
     Route: 042
  39. DOXIL [Concomitant]
     Active Substance: DOXORUBICIN HYDROCHLORIDE
  40. IFEX [Concomitant]
     Active Substance: IFOSFAMIDE

REACTIONS (2)
  - Off label use [Unknown]
  - Death [Fatal]
